FAERS Safety Report 9496312 (Version 1)
Quarter: 2013Q3

REPORT INFORMATION
  Report Type: Spontaneous
  Country: US (occurrence: US)
  Receive Date: 20130904
  Receipt Date: 20130904
  Transmission Date: 20140515
  Serious: No
  Sender: FDA-Public Use
  Company Number: US-BAYER-2013-106648

PATIENT
  Age: 22 Year
  Sex: Male
  Weight: 94 kg

DRUGS (2)
  1. ALEVE CAPLET [Suspect]
     Indication: PAIN IN EXTREMITY
     Dosage: DOSE, PRN
     Route: 048
  2. CORTISONE [CORTISONE] [Concomitant]

REACTIONS (2)
  - Drug screen positive [None]
  - Extra dose administered [None]
